FAERS Safety Report 4517308-1 (Version None)
Quarter: 2004Q4

REPORT INFORMATION
  Report Type: 
  Country: None (occurrence: None)
  Receive Date: 20041008
  Receipt Date: 20040621
  Transmission Date: 20050328
  Serious: No
  Sender: FDA-Public Use
  Company Number: 2004S1000129

PATIENT
  Age: 55 Year
  Sex: Male
  Weight: 117 kg

DRUGS (7)
  1. CUBICIN [Suspect]
     Indication: DIABETIC FOOT
     Dosage: 700 MG; Q24H; IV
     Route: 042
     Dates: start: 20040512, end: 20040603
  2. CUBICIN [Suspect]
     Indication: STAPHYLOCOCCAL BACTERAEMIA
     Dosage: 700 MG; Q24H; IV
     Route: 042
     Dates: start: 20040512, end: 20040603
  3. LANSOPRAZOLE [Concomitant]
  4. INSULIN [Concomitant]
  5. LASIX [Concomitant]
  6. FOLIC ACID [Concomitant]
  7. LABETALOL HCL [Concomitant]

REACTIONS (1)
  - BLOOD CREATINE PHOSPHOKINASE INCREASED [None]
